FAERS Safety Report 24602316 (Version 1)
Quarter: 2024Q4

REPORT INFORMATION
  Report Type: Spontaneous
  Country: US (occurrence: US)
  Receive Date: 20241111
  Receipt Date: 20241111
  Transmission Date: 20250114
  Serious: Yes (Hospitalization)
  Sender: GLAXOSMITHKLINE
  Company Number: US-GSKCCFUS-Case-02143349_AE-118212

PATIENT

DRUGS (4)
  1. TRELEGY ELLIPTA [Suspect]
     Active Substance: FLUTICASONE FUROATE\UMECLIDINIUM BROMIDE\VILANTEROL TRIFENATATE
     Indication: Chronic obstructive pulmonary disease
     Dosage: UNK, 100/62.5/25 MCG
     Route: 055
  2. ANORO ELLIPTA [Suspect]
     Active Substance: UMECLIDINIUM BROMIDE\VILANTEROL TRIFENATATE
     Indication: Asthma
     Dosage: UNK, 62.5/25 MCG
     Route: 055
  3. ANORO ELLIPTA [Suspect]
     Active Substance: UMECLIDINIUM BROMIDE\VILANTEROL TRIFENATATE
     Indication: Chronic obstructive pulmonary disease
  4. PREDNISONE [Concomitant]
     Active Substance: PREDNISONE
     Indication: Influenza
     Dosage: UNK, DECREASE BY ONE PILL DAILY UNTIL GONE (6,5,4,3,2,1 PILLS ORALLY, DECREASING BY ONE DAILY)

REACTIONS (4)
  - Chronic obstructive pulmonary disease [Unknown]
  - Influenza [Unknown]
  - Drug ineffective [Unknown]
  - Product use in unapproved indication [Unknown]
